FAERS Safety Report 8442374 (Version 3)
Quarter: 2014Q2

REPORT INFORMATION
  Report Type: Spontaneous
  Country: US (occurrence: US)
  Receive Date: 20120306
  Receipt Date: 20140428
  Transmission Date: 20141212
  Serious: Yes (Hospitalization, Other)
  Sender: FDA-Public Use
  Company Number: US-BAYER-2012-019394

PATIENT
  Age: 18 Year
  Sex: Female
  Weight: 72.11 kg

DRUGS (11)
  1. YAZ [Suspect]
     Dosage: UNK
     Dates: start: 20080218, end: 20080520
  2. YAZ [Suspect]
     Dosage: UNK
     Dates: end: 20090526
  3. ZOFRAN [Concomitant]
  4. ACETAMINOPHEN [Concomitant]
     Dosage: 325 MG, UNK
     Route: 048
     Dates: start: 20080406
  5. MIDRIN [Concomitant]
     Dosage: 325-65-100 MG
     Route: 048
     Dates: start: 20080406
  6. BACITRACIN ZINC [Concomitant]
     Dosage: 500 UNIT/GM
     Dates: start: 20080406
  7. DOCUSATE SODIUM [Concomitant]
     Dosage: 100 MG, UNK
     Route: 048
     Dates: start: 20080406
  8. NORCO [Concomitant]
  9. HYDROCODONE [HYDROCODONE] [Concomitant]
     Dosage: 5 MG, UNK
     Dates: start: 20080307
  10. IBUPROFEN [Concomitant]
     Dosage: 600 MG, UNK
     Dates: start: 20080221
  11. FERROUS SULFATE [Concomitant]
     Dosage: 325 MG, UNK
     Dates: start: 20080221

REACTIONS (5)
  - Cholecystitis acute [None]
  - Cholecystectomy [None]
  - Emotional distress [None]
  - Anxiety [None]
  - Pain [None]
